FAERS Safety Report 8062477 (Version 5)
Quarter: 2015Q2

REPORT INFORMATION
  Report Type: Spontaneous
  Country: JP (occurrence: JP)
  Receive Date: 20110801
  Receipt Date: 20150403
  Transmission Date: 20150821
  Serious: Yes (Life-Threatening, Hospitalization, Other)
  Sender: FDA-Public Use
  Company Number: JP-SANOFI-AVENTIS-2011SA047136

PATIENT
  Age: 73 Year
  Sex: Male
  Weight: 167 kg

DRUGS (15)
  1. FLUOROURACIL. [Concomitant]
     Active Substance: FLUOROURACIL
     Indication: COLON CANCER
     Dosage: DOSE: 700 MG/BODY D1-2
     Route: 041
     Dates: start: 2008
  2. FLUOROURACIL. [Concomitant]
     Active Substance: FLUOROURACIL
     Indication: COLON CANCER
     Dosage: TOTAL 3 CYCLES, DOSE: 596 MG/BODY
     Route: 040
     Dates: start: 20080723
  3. FLUOROURACIL. [Concomitant]
     Active Substance: FLUOROURACIL
     Indication: COLON CANCER
     Dosage: DOSE: 894 MG/BODY D1-2, TOTAL 3 CYCLES
     Route: 041
     Dates: start: 20080723
  4. FLUOROURACIL. [Concomitant]
     Active Substance: FLUOROURACIL
     Indication: COLON CANCER
     Route: 041
     Dates: start: 2008
  5. AVASTIN [Concomitant]
     Active Substance: BEVACIZUMAB
     Indication: COLON CANCER
     Dosage: DOSE: 229.5 MG/BODY
     Route: 041
     Dates: start: 20080723, end: 20080903
  6. KYTRIL [Concomitant]
     Active Substance: GRANISETRON HYDROCHLORIDE
     Dates: start: 20080723, end: 20080903
  7. PENTCILLIN [Concomitant]
     Active Substance: PIPERACILLIN SODIUM
     Dates: start: 2008, end: 20080905
  8. ELPLAT [Suspect]
     Active Substance: OXALIPLATIN
     Indication: COLON CANCER
     Dosage: TOTAL 3 CYCLES, DOSE 126.65MG/BODY
     Route: 041
     Dates: start: 20080723, end: 20080723
  9. ELPLAT [Suspect]
     Active Substance: OXALIPLATIN
     Indication: COLON CANCER
     Dosage: DOSE: 126.65MG/BODY
     Route: 041
     Dates: start: 20080806, end: 20080806
  10. DECADRON [Concomitant]
     Active Substance: DEXAMETHASONE
     Dosage: 2
  11. NEUTROGIN [Concomitant]
     Active Substance: LENOGRASTIM
     Dates: start: 20080811, end: 20080811
  12. ELPLAT [Suspect]
     Active Substance: OXALIPLATIN
     Indication: COLON CANCER
     Dosage: DOSE: 97 MG/BODY
     Route: 041
     Dates: start: 20080903, end: 20080903
  13. CALCIUM LEVOFOLINATE [Concomitant]
     Active Substance: LEVOLEUCOVORIN CALCIUM
     Indication: COLON CANCER
     Dosage: DOSE: 149 MG/BODY
     Route: 041
     Dates: start: 20080723
  14. CALCIUM LEVOFOLINATE [Concomitant]
     Active Substance: LEVOLEUCOVORIN CALCIUM
     Indication: COLON CANCER
     Dosage: DOSE: 150 MG/BODY
     Route: 041
     Dates: start: 2008, end: 20080904
  15. FLUOROURACIL. [Concomitant]
     Active Substance: FLUOROURACIL
     Indication: COLON CANCER
     Dosage: DOSE: 475 MG/BODY
     Route: 040
     Dates: start: 2008

REACTIONS (12)
  - Neutropenia [Recovered/Resolved]
  - Leukopenia [Unknown]
  - Chest X-ray abnormal [Recovered/Resolved]
  - Central venous pressure increased [Recovered/Resolved]
  - Wheezing [Recovered/Resolved]
  - PO2 decreased [Recovered/Resolved]
  - Hypoxia [Recovered/Resolved]
  - Nausea [Recovered/Resolved]
  - Dyspnoea [Recovered/Resolved]
  - Type IV hypersensitivity reaction [Recovering/Resolving]
  - Acute respiratory distress syndrome [Recovered/Resolved]
  - Haemoptysis [Recovering/Resolving]

NARRATIVE: CASE EVENT DATE: 20080809
